FAERS Safety Report 9743192 (Version 3)
Quarter: 2015Q3

REPORT INFORMATION
  Report Type: Spontaneous
  Country: US (occurrence: US)
  Receive Date: 20131210
  Receipt Date: 20150804
  Transmission Date: 20151125
  Serious: No
  Sender: FDA-Public Use
  Company Number: US-GILEAD-2009-0024883

PATIENT
  Age: 50 Year
  Sex: Female
  Weight: 97.52 kg

DRUGS (25)
  1. COREG [Concomitant]
     Active Substance: CARVEDILOL
  2. BUMEX [Concomitant]
     Active Substance: BUMETANIDE
  3. PYRIDIUM [Concomitant]
     Active Substance: PHENAZOPYRIDINE
  4. HYDROCODONE-APAP [Concomitant]
     Active Substance: ACETAMINOPHEN\HYDROCODONE
  5. LETAIRIS [Suspect]
     Active Substance: AMBRISENTAN
     Indication: PULMONARY ARTERIAL HYPERTENSION
     Route: 048
     Dates: start: 20090119
  6. ALDACTONE [Concomitant]
     Active Substance: SPIRONOLACTONE
  7. NIACIN. [Concomitant]
     Active Substance: NIACIN
  8. REVATIO [Concomitant]
     Active Substance: SILDENAFIL CITRATE
  9. ZOLOFT [Concomitant]
     Active Substance: SERTRALINE HYDROCHLORIDE
  10. PAXIL [Concomitant]
     Active Substance: PAROXETINE HYDROCHLORIDE
  11. XANAX [Concomitant]
     Active Substance: ALPRAZOLAM
  12. ZOCOR [Concomitant]
     Active Substance: SIMVASTATIN
  13. COUMADIN [Concomitant]
     Active Substance: WARFARIN SODIUM
  14. AMBIEN [Concomitant]
     Active Substance: ZOLPIDEM TARTRATE
  15. ELAVIL [Concomitant]
     Active Substance: AMITRIPTYLINE HYDROCHLORIDE
  16. SYNTHROID [Concomitant]
     Active Substance: LEVOTHYROXINE SODIUM
  17. VICODIN ES [Concomitant]
     Active Substance: ACETAMINOPHEN\HYDROCODONE BITARTRATE
  18. NEURONTIN [Concomitant]
     Active Substance: GABAPENTIN
  19. TORADOL [Concomitant]
     Active Substance: KETOROLAC TROMETHAMINE
  20. VITAMIN B12 [Concomitant]
     Active Substance: CYANOCOBALAMIN
  21. ASPIRIN. [Concomitant]
     Active Substance: ASPIRIN
  22. PARACETAMOL/HYDROCODONE BITARTRATE [Concomitant]
  23. COLACE [Concomitant]
     Active Substance: DOCUSATE SODIUM
  24. POTASSIUM CHLORIDE. [Concomitant]
     Active Substance: POTASSIUM CHLORIDE
  25. OXYGEN. [Concomitant]
     Active Substance: OXYGEN

REACTIONS (1)
  - Chest discomfort [Recovered/Resolved]
